FAERS Safety Report 19613041 (Version 4)
Quarter: 2021Q4

REPORT INFORMATION
  Report Type: Report from Study
  Country: None (occurrence: CH)
  Receive Date: 20210727
  Receipt Date: 20211011
  Transmission Date: 20220303
  Serious: Yes (Hospitalization)
  Sender: FDA-Public Use
  Company Number: CH-ABBVIE-21K-151-4005435-00

PATIENT
  Sex: Male

DRUGS (5)
  1. CARBIDOPA\LEVODOPA [Suspect]
     Active Substance: CARBIDOPA\LEVODOPA
     Indication: Parkinson^s disease
     Route: 050
     Dates: start: 20140113
  2. CARBIDOPA\LEVODOPA [Suspect]
     Active Substance: CARBIDOPA\LEVODOPA
     Dosage: MD: 0.0 ML, CRD: 2.5 ML/H, CRN: 0.0 ML/H, ED: 0.0 ML,16H THERAPY
     Route: 050
     Dates: start: 20210515, end: 20210610
  3. CARBIDOPA\LEVODOPA [Suspect]
     Active Substance: CARBIDOPA\LEVODOPA
     Dosage: MD: 3.0 ML, CRD: 1.0 ML/H, CRN: 0.0 ML/H, ED: 0.0 ML, 16H THERAPY
     Route: 050
     Dates: start: 20210610, end: 20210628
  4. CARBIDOPA\LEVODOPA [Suspect]
     Active Substance: CARBIDOPA\LEVODOPA
     Dosage: MD: 3.0 ML, CRD: 1.0 ML/H, CRN: 0.0 ML/H, ED: 0.0 ML, 16H THERAPY
     Route: 050
     Dates: start: 20210628
  5. NEUPRO [Concomitant]
     Active Substance: ROTIGOTINE
     Indication: Product used for unknown indication

REACTIONS (4)
  - Complication associated with device [Not Recovered/Not Resolved]
  - General physical health deterioration [Not Recovered/Not Resolved]
  - Secretion discharge [Not Recovered/Not Resolved]
  - Device placement issue [Unknown]
